FAERS Safety Report 6680738-6 (Version None)
Quarter: 2010Q2

REPORT INFORMATION
  Report Type: 
  Country: None (occurrence: None)
  Receive Date: 20100413
  Receipt Date: 20100413
  Transmission Date: 20101027
  Serious: No
  Sender: FDA-Public Use
  Company Number: None

PATIENT

DRUGS (1)
  1. TEGRETOL [Suspect]
     Indication: EPILEPSY
     Dosage: TABLET ONCE QID

REACTIONS (1)
  - CONVULSION [None]
